FAERS Safety Report 20920702 (Version 2)
Quarter: 2022Q2

REPORT INFORMATION
  Report Type: Spontaneous
  Country: CN (occurrence: CN)
  Receive Date: 20220606
  Receipt Date: 20220609
  Transmission Date: 20220721
  Serious: Yes (Hospitalization, Other)
  Sender: FDA-Public Use
  Company Number: CN-PFIZER INC-202200798157

PATIENT
  Age: 86 Year
  Sex: Female

DRUGS (2)
  1. DACOMITINIB [Suspect]
     Active Substance: DACOMITINIB
     Indication: Lung neoplasm malignant
     Dosage: 15 MG, 1X/DAY
     Route: 048
     Dates: start: 20210624, end: 20220525
  2. RIVAROXABAN [Suspect]
     Active Substance: RIVAROXABAN
     Indication: Cardiac failure
     Dosage: 10 MG, 1X/DAY
     Route: 048
     Dates: start: 20220414, end: 20220525

REACTIONS (3)
  - Upper gastrointestinal haemorrhage [Recovering/Resolving]
  - Cardiac failure [Recovering/Resolving]
  - Off label use [Unknown]

NARRATIVE: CASE EVENT DATE: 20210624
